FAERS Safety Report 4780402-4 (Version None)
Quarter: 2005Q3

REPORT INFORMATION
  Report Type: 
  Country: None (occurrence: None)
  Receive Date: 20050927
  Receipt Date: 20050609
  Transmission Date: 20060218
  Serious: Yes (Death)
  Sender: FDA-Public Use
  Company Number: GB-JNJFOC-20050407200

PATIENT
  Age: 64 Year
  Sex: Female

DRUGS (11)
  1. IBUPROFEN [Suspect]
     Route: 048
  2. IBUPROFEN [Suspect]
     Indication: DRUG USE FOR UNKNOWN INDICATION
     Route: 048
  3. PREDNISOLONE [Suspect]
     Indication: DRUG USE FOR UNKNOWN INDICATION
     Route: 048
  4. ATROVENT [Suspect]
     Route: 055
  5. AMOXICILLIN [Suspect]
     Indication: DRUG USE FOR UNKNOWN INDICATION
  6. SALMETEROL/FLUTICASONE [Suspect]
     Route: 055
  7. SALMETEROL/FLUTICASONE [Suspect]
     Indication: DRUG USE FOR UNKNOWN INDICATION
     Dosage: 2 PUFFS TWICE DAILY
     Route: 055
  8. VENTODISKS [Suspect]
     Indication: DRUG USE FOR UNKNOWN INDICATION
  9. OXYGEN [Suspect]
     Indication: DRUG USE FOR UNKNOWN INDICATION
  10. ALBUTEROL SULFATE HFA [Suspect]
     Indication: DRUG USE FOR UNKNOWN INDICATION
  11. PHYLLOCONTIN [Concomitant]

REACTIONS (2)
  - BRONCHOPNEUMONIA [None]
  - EMPHYSEMA [None]
